FAERS Safety Report 11844263 (Version 2)
Quarter: 2016Q1

REPORT INFORMATION
  Report Type: Spontaneous
  Country: US (occurrence: US)
  Receive Date: 20151217
  Receipt Date: 20160303
  Transmission Date: 20160526
  Serious: Yes (Hospitalization, Other)
  Sender: FDA-Public Use
  Company Number: US-BAYER-2015-490444

PATIENT
  Age: 23 Year
  Sex: Female

DRUGS (2)
  1. NUVARING [Concomitant]
     Active Substance: ETHINYL ESTRADIOL\ETONOGESTREL
  2. MIRENA [Suspect]
     Active Substance: LEVONORGESTREL
     Indication: CONTRACEPTION
     Dosage: 20 MCG/24HR, CONT
     Route: 015
     Dates: start: 20080604, end: 20080731

REACTIONS (4)
  - Uterine perforation [None]
  - Pain [None]
  - Device issue [None]
  - Vaginal haemorrhage [None]

NARRATIVE: CASE EVENT DATE: 20080730
